FAERS Safety Report 9966630 (Version 1)
Quarter: 2014Q1

REPORT INFORMATION
  Report Type: Report from Study
  Country: US (occurrence: US)
  Receive Date: 20140305
  Receipt Date: 20140305
  Transmission Date: 20141002
  Serious: No
  Sender: FDA-Public Use
  Company Number: US-ABBVIE-13P-163-1122045-00

PATIENT
  Age: 25 Year
  Sex: Female

DRUGS (4)
  1. HUMIRA [Suspect]
     Indication: CROHN^S DISEASE
     Dates: start: 20130617, end: 20130617
  2. HUMIRA [Suspect]
     Dates: start: 20130707, end: 20130707
  3. HUMIRA [Suspect]
     Dates: end: 20130715
  4. MIRENA [Concomitant]
     Indication: CONTRACEPTION

REACTIONS (9)
  - Injection site erythema [Not Recovered/Not Resolved]
  - Nausea [Not Recovered/Not Resolved]
  - Injection site pruritus [Not Recovered/Not Resolved]
  - Headache [Not Recovered/Not Resolved]
  - Injection site swelling [Not Recovered/Not Resolved]
  - Injection site hypersensitivity [Recovered/Resolved]
  - Injection site swelling [Recovered/Resolved]
  - Injection site vesicles [Recovered/Resolved]
  - Injection site pruritus [Recovered/Resolved]
